FAERS Safety Report 17176324 (Version 1)
Quarter: 2019Q4

REPORT INFORMATION
  Report Type: Spontaneous
  Country: IT (occurrence: IT)
  Receive Date: 20191219
  Receipt Date: 20191219
  Transmission Date: 20200122
  Serious: Yes (Other)
  Sender: FDA-Public Use
  Company Number: IT-MYLANLABS-2019M1124907

PATIENT
  Age: 12 Year
  Sex: Female

DRUGS (8)
  1. INFLIXIMAB [Concomitant]
     Active Substance: INFLIXIMAB
     Indication: OLIGOARTHRITIS
     Dosage: 10 MILLIGRAM/KILOGRAM (10 MG/KG, Q8W)
  2. PREDNISONE. [Suspect]
     Active Substance: PREDNISONE
     Indication: OLIGOARTHRITIS
  3. METHOTREXATE. [Concomitant]
     Active Substance: METHOTREXATE
     Indication: UVEITIS
     Dosage: 15 MG, QW
  4. ADALIMUMAB [Concomitant]
     Active Substance: ADALIMUMAB
     Indication: OLIGOARTHRITIS
  5. INFLIXIMAB [Concomitant]
     Active Substance: INFLIXIMAB
     Indication: UVEITIS
     Dosage: 6 MILLIGRAM/KILOGRAM (6 MG/KG, Q8W)
  6. METHOTREXATE. [Concomitant]
     Active Substance: METHOTREXATE
     Indication: OLIGOARTHRITIS
     Dosage: 15 MG/M2, QW
  7. PREDNISONE. [Suspect]
     Active Substance: PREDNISONE
     Indication: UVEITIS
     Dosage: 15 MG, QD
     Route: 048
  8. ADALIMUMAB [Concomitant]
     Active Substance: ADALIMUMAB
     Indication: UVEITIS
     Dosage: 24 MILLIGRAM/SQ. METER, BIWEEKLY (24 MG/M2, QOW)

REACTIONS (1)
  - Uveitis [Recovered/Resolved]
